FAERS Safety Report 7759578-2 (Version None)
Quarter: 2011Q3

REPORT INFORMATION
  Report Type: 
  Country: None (occurrence: None)
  Receive Date: 20110919
  Receipt Date: 20110825
  Transmission Date: 20111222
  Serious: No
  Sender: FDA-Public Use
  Company Number: US-JNJFOC-20110812545

PATIENT
  Sex: Female

DRUGS (2)
  1. INVEGA [Suspect]
     Indication: PRODUCT USED FOR UNKNOWN INDICATION
     Route: 048
  2. UNKNOWN MEDICATION [Concomitant]
     Route: 065

REACTIONS (2)
  - WEIGHT INCREASED [None]
  - HALLUCINATION, AUDITORY [None]
